FAERS Safety Report 17549914 (Version 2)
Quarter: 2020Q2

REPORT INFORMATION
  Report Type: Spontaneous
  Country: US (occurrence: US)
  Receive Date: 20200317
  Receipt Date: 20200608
  Transmission Date: 20200713
  Serious: Yes (Other)
  Sender: FDA-Public Use
  Company Number: US-PFIZER INC-2020113951

PATIENT
  Age: 52 Year
  Sex: Female

DRUGS (1)
  1. XELJANZ XR [Suspect]
     Active Substance: TOFACITINIB CITRATE
     Dosage: 11 MG, UNK
     Dates: start: 20190725

REACTIONS (6)
  - Malaise [Unknown]
  - Peripheral swelling [Not Recovered/Not Resolved]
  - Condition aggravated [Unknown]
  - Sinusitis [Unknown]
  - Pneumonia [Unknown]
  - Drug hypersensitivity [Unknown]
